FAERS Safety Report 7975344-7 (Version None)
Quarter: 2011Q4

REPORT INFORMATION
  Report Type: 
  Country: None (occurrence: None)
  Receive Date: 20111213
  Receipt Date: 20110926
  Transmission Date: 20120403
  Serious: No
  Sender: FDA-Public Use
  Company Number: US-AMGEN-USASP2011049537

PATIENT
  Age: 48 Year
  Sex: Female

DRUGS (1)
  1. ENBREL [Suspect]
     Indication: PSORIATIC ARTHROPATHY
     Dosage: 25 MG, 2 TIMES/WK
     Dates: start: 20030101

REACTIONS (5)
  - INJECTION SITE PAIN [None]
  - MALAISE [None]
  - INJECTION SITE HAEMATOMA [None]
  - SIALOADENITIS [None]
  - NAUSEA [None]
